FAERS Safety Report 4822862-6 (Version None)
Quarter: 2005Q4

REPORT INFORMATION
  Report Type: 
  Country: None (occurrence: None)
  Receive Date: 20051104
  Receipt Date: 20051020
  Transmission Date: 20060501
  Serious: Yes (Other)
  Sender: FDA-Public Use
  Company Number: 2005-US-00813

PATIENT
  Age: 56 Year
  Sex: Male

DRUGS (1)
  1. CLOZAPINE [Suspect]
     Indication: BIPOLAR DISORDER
     Dosage: 275 MG, QD, ORAL
     Route: 048
     Dates: start: 20050801

REACTIONS (2)
  - DIZZINESS [None]
  - PAPILLOEDEMA [None]
